FAERS Safety Report 13746499 (Version 1)
Quarter: 2017Q3

REPORT INFORMATION
  Report Type: Spontaneous
  Country: DE (occurrence: DE)
  Receive Date: 20170712
  Receipt Date: 20170712
  Transmission Date: 20171127
  Serious: Yes (Disabling, Other)
  Sender: FDA-Public Use
  Company Number: DE-TEVA-784766GER

PATIENT
  Sex: Male

DRUGS (1)
  1. CYCLOSPORIN 50MG [Suspect]
     Active Substance: CYCLOSPORINE

REACTIONS (2)
  - Skin haemorrhage [Unknown]
  - Glaucoma [Unknown]
